FAERS Safety Report 18186317 (Version 1)
Quarter: 2020Q3

REPORT INFORMATION
  Report Type: Spontaneous
  Country: TH (occurrence: TH)
  Receive Date: 20200824
  Receipt Date: 20200824
  Transmission Date: 20201103
  Serious: Yes (Other)
  Sender: FDA-Public Use
  Company Number: TH-LUPIN PHARMACEUTICALS INC.-2020-05035

PATIENT
  Age: 71 Year
  Sex: Male

DRUGS (2)
  1. POTASSIUM [Suspect]
     Active Substance: POTASSIUM
     Indication: FUNGAL INFECTION
     Dosage: 30 MILLIGRAM/KILOGRAM, QD
     Route: 065
     Dates: start: 2018
  2. ITRACONAZOLE. [Concomitant]
     Active Substance: ITRACONAZOLE
     Indication: FUNGAL INFECTION
     Dosage: 400 MILLIGRAM, QD
     Route: 065
     Dates: start: 2018

REACTIONS (1)
  - Hypothyroidism [Unknown]
